FAERS Safety Report 8353382-2 (Version None)
Quarter: 2012Q2

REPORT INFORMATION
  Report Type: 
  Country: None (occurrence: None)
  Receive Date: 20120511
  Receipt Date: 20120510
  Transmission Date: 20120825
  Serious: No
  Sender: FDA-Public Use
  Company Number: US-PFIZER INC-2012114383

PATIENT
  Sex: Female
  Weight: 67 kg

DRUGS (6)
  1. CHANTIX [Suspect]
     Indication: SMOKING CESSATION THERAPY
     Dosage: 0.5 MG, DAILY
     Dates: start: 20120504, end: 20120501
  2. CYMBALTA [Concomitant]
     Indication: DEPRESSION
     Dosage: 60 MG, DAILY
  3. ALBUTEROL [Concomitant]
     Indication: DEPRESSION
     Dosage: UNK
  4. CHANTIX [Suspect]
     Dosage: 0.5 MG, 2X/DAY
     Dates: start: 20120501
  5. SPIRIVA [Concomitant]
     Indication: CHRONIC OBSTRUCTIVE PULMONARY DISEASE
     Dosage: 18 UG, DAILY
  6. IBUPROFEN (ADVIL) [Concomitant]
     Dosage: 150 MG, 2X/DAY

REACTIONS (1)
  - ABNORMAL DREAMS [None]
